FAERS Safety Report 20702938 (Version 5)
Quarter: 2022Q2

REPORT INFORMATION
  Report Type: Spontaneous
  Country: US (occurrence: US)
  Receive Date: 20220413
  Receipt Date: 20220514
  Transmission Date: 20220720
  Serious: Yes (Death, Hospitalization, Other)
  Sender: FDA-Public Use
  Company Number: US-UNITED THERAPEUTICS-UNT-2022-004932

PATIENT
  Age: 63 Year
  Sex: Male
  Weight: 95.692 kg

DRUGS (5)
  1. TYVASO [Suspect]
     Active Substance: TREPROSTINIL
     Indication: Pulmonary arterial hypertension
     Dosage: UNK
     Dates: start: 20220301
  2. TYVASO [Suspect]
     Active Substance: TREPROSTINIL
     Dosage: 18-72 ?G, QID
  3. TYVASO [Suspect]
     Active Substance: TREPROSTINIL
     Dosage: UNK
  4. TYVASO [Suspect]
     Active Substance: TREPROSTINIL
     Dosage: 48 ?G
  5. TYVASO [Suspect]
     Active Substance: TREPROSTINIL
     Dosage: UNK
     Dates: end: 202204

REACTIONS (14)
  - General physical health deterioration [Fatal]
  - Nephrolithiasis [Unknown]
  - Dyspnoea [Not Recovered/Not Resolved]
  - Oxygen saturation decreased [Unknown]
  - Back pain [Unknown]
  - Vomiting [Unknown]
  - Condition aggravated [Unknown]
  - Chest pain [Unknown]
  - Oropharyngeal pain [Unknown]
  - Throat irritation [Unknown]
  - Myalgia [Recovering/Resolving]
  - Sneezing [Unknown]
  - Cough [Unknown]
  - Mass [Unknown]

NARRATIVE: CASE EVENT DATE: 20220302
